FAERS Safety Report 10252650 (Version 4)
Quarter: 2014Q3

REPORT INFORMATION
  Report Type: Spontaneous
  Country: US (occurrence: None)
  Receive Date: 20140619
  Receipt Date: 20140825
  Transmission Date: 20150326
  Serious: Yes (Life-Threatening, Hospitalization, Other)
  Sender: FDA-Public Use
  Company Number: AUR-APL-2014-06473

PATIENT
  Age: 74 Year
  Sex: Female

DRUGS (8)
  1. CLARITHROMYCIN. [Suspect]
     Active Substance: CLARITHROMYCIN
     Indication: HELICOBACTER GASTRITIS
  2. FELODIPINE. [Suspect]
     Active Substance: FELODIPINE
     Indication: PRODUCT USED FOR UNKNOWN INDICATION
  3. OMEPRAZOLE (OMEPRAZOLE) [Concomitant]
     Active Substance: OMEPRAZOLE
  4. VALSARTAN (VALSARTAN) [Concomitant]
     Active Substance: VALSARTAN
  5. LANSOPRAZOLE (LANSOPRAZOLE) [Suspect]
     Active Substance: LANSOPRAZOLE
     Indication: HELICOBACTER INFECTION
  6. NEBIVOLOL [Concomitant]
     Active Substance: NEBIVOLOL
  7. AMOXICILLIN (AMOXICILLIN) [Suspect]
     Active Substance: AMOXICILLIN
     Indication: HELICOBACTER INFECTION
  8. LOVASTATIN (LOVASTATIN) [Concomitant]
     Active Substance: LOVASTATIN

REACTIONS (10)
  - Metabolic acidosis [None]
  - Shock [None]
  - Bradycardia [None]
  - Diarrhoea [None]
  - Nausea [None]
  - Vomiting [None]
  - Dizziness [None]
  - Abdominal pain [None]
  - Renal failure acute [None]
  - Drug interaction [None]
